FAERS Safety Report 19891976 (Version 1)
Quarter: 2021Q3

REPORT INFORMATION
  Report Type: Spontaneous
  Country: US (occurrence: US)
  Receive Date: 20210928
  Receipt Date: 20210928
  Transmission Date: 20211014
  Serious: Yes (Other)
  Sender: FDA-Public Use
  Company Number: US-PERRIGO-21US025798

PATIENT
  Age: 15 Year
  Sex: Female

DRUGS (1)
  1. RANITIDINE HYDROCHLORIDE (852) [Suspect]
     Active Substance: RANITIDINE HYDROCHLORIDE
     Indication: INTESTINAL ULCER
     Dosage: DOSE FREQUENCY: OTHER ? 3 TIMES A DAY
     Route: 048
     Dates: start: 201201, end: 202001

REACTIONS (2)
  - Cervix carcinoma [Unknown]
  - Uterine cancer [Unknown]

NARRATIVE: CASE EVENT DATE: 20200810
